FAERS Safety Report 6061464-3 (Version None)
Quarter: 2009Q1

REPORT INFORMATION
  Report Type: 
  Country: None (occurrence: None)
  Receive Date: 20090202
  Receipt Date: 20090128
  Transmission Date: 20090719
  Serious: Yes (Other)
  Sender: FDA-Public Use
  Company Number: US-JNJFOC-20090107251

PATIENT
  Age: 25 Year
  Sex: Female

DRUGS (4)
  1. TOPAMAX [Suspect]
     Indication: APPETITE DISORDER
     Route: 048
  2. LAMICTAL [Concomitant]
     Indication: BIPOLAR DISORDER
     Route: 048
  3. TRILEPTAL [Concomitant]
     Indication: BIPOLAR DISORDER
     Route: 048
  4. UNSPECIFIED MEDICATION [Concomitant]
     Indication: GASTROOESOPHAGEAL REFLUX DISEASE
     Route: 048

REACTIONS (2)
  - PALPITATIONS [None]
  - TACHYCARDIA [None]
